FAERS Safety Report 9716776 (Version 1)
Quarter: 2013Q4

REPORT INFORMATION
  Report Type: Spontaneous
  Country: US (occurrence: None)
  Receive Date: 20131126
  Receipt Date: 20131126
  Transmission Date: 20140711
  Serious: Yes (Life-Threatening, Hospitalization, Other)
  Sender: FDA-Public Use
  Company Number: None

PATIENT
  Age: 89 Year
  Sex: Male
  Weight: 122.47 kg

DRUGS (13)
  1. RIVAROXABAN [Suspect]
     Indication: ATRIAL FIBRILLATION
     Dosage: 1 TABLET
     Route: 048
     Dates: start: 20130909, end: 20131108
  2. RIVAROXABAN [Suspect]
     Indication: CEREBROVASCULAR ACCIDENT PROPHYLAXIS
     Dosage: 1 TABLET
     Route: 048
     Dates: start: 20130909, end: 20131108
  3. FUROSEMIDE [Concomitant]
  4. ALUM-MAG HYDROXIDE-SIMETH [Concomitant]
  5. ACETAMINOPHEN [Concomitant]
  6. PROMETHAZINE [Concomitant]
  7. PANTOPRAZOLE [Concomitant]
  8. MULTIVITAMIN,TX-IORN-CA-FA-MIN [Concomitant]
  9. ALPRAZOLAM [Concomitant]
  10. DEXTROMETHORPHAN-GUAIFENESIN [Concomitant]
  11. FERROUS SULFATE [Concomitant]
  12. POTASSIUM CHLORIDE [Concomitant]
  13. ESCITALOPRAM [Concomitant]

REACTIONS (4)
  - Lethargy [None]
  - Asthenia [None]
  - Faeces discoloured [None]
  - Faeces discoloured [None]
